FAERS Safety Report 9795573 (Version 1)
Quarter: 2014Q1

REPORT INFORMATION
  Report Type: Spontaneous
  Country: GB (occurrence: GB)
  Receive Date: 20140103
  Receipt Date: 20140103
  Transmission Date: 20141002
  Serious: Yes (Hospitalization, Other)
  Sender: FDA-Public Use
  Company Number: GB-ROCHE-1328474

PATIENT
  Age: 65 Year
  Sex: Female
  Weight: 65 kg

DRUGS (15)
  1. RITUXIMAB [Suspect]
     Indication: NON-HODGKIN^S LYMPHOMA
     Route: 042
     Dates: start: 20131126, end: 20131126
  2. CYCLOPHOSPHAMIDE [Suspect]
     Indication: NON-HODGKIN^S LYMPHOMA
     Route: 042
     Dates: start: 20131126, end: 20131126
  3. DOXORUBICIN [Suspect]
     Indication: NON-HODGKIN^S LYMPHOMA
     Route: 042
     Dates: start: 20131126, end: 20131126
  4. VINCRISTINE [Suspect]
     Indication: NON-HODGKIN^S LYMPHOMA
     Route: 042
     Dates: start: 20131126, end: 20131126
  5. ALLOPURINOL [Concomitant]
     Route: 065
  6. AMITRIPTYLINE [Concomitant]
     Route: 065
  7. METFORMIN [Concomitant]
     Route: 065
  8. BENDROFLUMETHIAZIDE [Concomitant]
  9. FOSINOPRIL [Concomitant]
  10. METHYLCELLULOSE [Concomitant]
  11. PIOGLITAZONE [Concomitant]
  12. PREDNISOLONE [Concomitant]
  13. SAXAGLIPTIN [Concomitant]
  14. SIMVASTATIN [Concomitant]
  15. TERBUTALINE [Concomitant]

REACTIONS (3)
  - Pulmonary fibrosis [Not Recovered/Not Resolved]
  - Sepsis [Not Recovered/Not Resolved]
  - Dyspnoea [Not Recovered/Not Resolved]
